FAERS Safety Report 4490467-5 (Version None)
Quarter: 2004Q4

REPORT INFORMATION
  Report Type: 
  Country: None (occurrence: None)
  Receive Date: 20041028
  Receipt Date: 20041015
  Transmission Date: 20050328
  Serious: Yes (Hospitalization)
  Sender: FDA-Public Use
  Company Number: 2004AP03968

PATIENT
  Age: 69 Year
  Sex: Male

DRUGS (3)
  1. CASODEX [Suspect]
     Indication: PROSTATE CANCER
     Dosage: 80 MG DAILY PO
     Route: 048
  2. ZOLADEX [Suspect]
     Indication: PROSTATE CANCER
     Dosage: 10.8 MG Q3MO SQ
     Route: 058
     Dates: start: 20040430, end: 20040430
  3. ZOLADEX [Concomitant]

REACTIONS (4)
  - ARRHYTHMIA [None]
  - ASTHENIA [None]
  - ATRIAL FIBRILLATION [None]
  - CONDITION AGGRAVATED [None]
